FAERS Safety Report 8431715-6 (Version None)
Quarter: 2012Q2

REPORT INFORMATION
  Report Type: 
  Country: None (occurrence: None)
  Receive Date: 20120613
  Receipt Date: 20120604
  Transmission Date: 20120825
  Serious: Yes (Hospitalization)
  Sender: FDA-Public Use
  Company Number: US-BAYER-201015115NA

PATIENT
  Age: 34 Year
  Sex: Female
  Weight: 90.703 kg

DRUGS (5)
  1. ACETAMINOPHEN [Concomitant]
  2. ACETAMINOPHEN [Concomitant]
     Dosage: UNK UNK, PRN
  3. YAZ [Suspect]
  4. YASMIN [Suspect]
     Indication: CONTRACEPTION
     Route: 048
  5. CEFTIN [Concomitant]

REACTIONS (5)
  - APPENDICITIS [None]
  - ANXIETY [None]
  - INJURY [None]
  - DEPRESSION [None]
  - VENA CAVA THROMBOSIS [None]
